FAERS Safety Report 10431090 (Version 1)
Quarter: 2014Q3

REPORT INFORMATION
  Report Type: Spontaneous
  Country: US (occurrence: None)
  Receive Date: 20140902
  Receipt Date: 20140902
  Transmission Date: 20150326
  Serious: Yes (Hospitalization, Other)
  Sender: FDA-Public Use
  Company Number: ADR-2014-01563

PATIENT
  Age: 19 Year
  Sex: Female

DRUGS (1)
  1. BACLOFEN (ORAL) [Suspect]
     Active Substance: BACLOFEN
     Indication: MUSCLE SPASTICITY

REACTIONS (9)
  - Dyspnoea [None]
  - Hiccups [None]
  - Toxicity to various agents [None]
  - Fatigue [None]
  - Chest pain [None]
  - Speech disorder [None]
  - Muscle fatigue [None]
  - Cardiac murmur [None]
  - Headache [None]

NARRATIVE: CASE EVENT DATE: 20140319
